FAERS Safety Report 15589514 (Version 2)
Quarter: 2018Q4

REPORT INFORMATION
  Report Type: Report from Study
  Country: TH (occurrence: TH)
  Receive Date: 20181106
  Receipt Date: 20181116
  Transmission Date: 20190205
  Serious: Yes (Death, Hospitalization)
  Sender: FDA-Public Use
  Company Number: TH-TAKEDA-2018MPI015407

PATIENT
  Age: 80 Year
  Sex: Male

DRUGS (1)
  1. BORTEZOMIB. [Suspect]
     Active Substance: BORTEZOMIB
     Indication: PLASMA CELL MYELOMA
     Dosage: 2 MG, QD
     Route: 065
     Dates: start: 20180808, end: 20181031

REACTIONS (4)
  - Hepatitis [Fatal]
  - Bladder disorder [Fatal]
  - Haematuria [Fatal]
  - Infection [Fatal]

NARRATIVE: CASE EVENT DATE: 20181011
